FAERS Safety Report 12444409 (Version 4)
Quarter: 2016Q3

REPORT INFORMATION
  Report Type: Report from Study
  Country: ES (occurrence: ES)
  Receive Date: 20160607
  Receipt Date: 20160720
  Transmission Date: 20161109
  Serious: Yes (Other)
  Sender: FDA-Public Use
  Company Number: ES-SHIRE-ES201606711

PATIENT
  Age: 52 Year
  Sex: Male
  Weight: 81 kg

DRUGS (5)
  1. TEDUGLUTIDE [Suspect]
     Active Substance: TEDUGLUTIDE
     Indication: PRODUCT USED FOR UNKNOWN INDICATION
     Dosage: 0.35 ML, 1X/DAY:QD
     Route: 058
     Dates: start: 20160127, end: 20160531
  2. ROCALTROL [Suspect]
     Active Substance: CALCITRIOL
     Dosage: UNK, OTHER (ONCE EVERY OTHER DAY)
     Route: 065
     Dates: start: 2016
  3. TEDUGLUTIDE [Suspect]
     Active Substance: TEDUGLUTIDE
     Dosage: 0.35 ML, OTHER (EVERY 72 HOURS)
     Route: 058
     Dates: start: 20160701
  4. TEDUGLUTIDE [Suspect]
     Active Substance: TEDUGLUTIDE
     Dosage: 0.35 ML, OTHER (EVERY 48 HOURS)
     Route: 058
     Dates: start: 20160601, end: 20160630
  5. ROCALTROL [Suspect]
     Active Substance: CALCITRIOL
     Indication: PRODUCT USED FOR UNKNOWN INDICATION
     Dosage: UNK, 1X/DAY:QD
     Route: 065
     Dates: start: 20160516, end: 2016

REACTIONS (8)
  - Oedema peripheral [Recovered/Resolved]
  - Weight increased [Unknown]
  - Flatulence [Unknown]
  - Inappropriate schedule of drug administration [Not Recovered/Not Resolved]
  - Vomiting [Unknown]
  - Underdose [Unknown]
  - Product use issue [Unknown]
  - Haemorrhage [Unknown]

NARRATIVE: CASE EVENT DATE: 2016
